FAERS Safety Report 13878118 (Version 1)
Quarter: 2017Q3

REPORT INFORMATION
  Report Type: Spontaneous
  Country: KR (occurrence: KR)
  Receive Date: 20170817
  Receipt Date: 20170817
  Transmission Date: 20171127
  Serious: Yes (Hospitalization)
  Sender: FDA-Public Use
  Company Number: KR-WARNER CHILCOTT-2016-000306

PATIENT
  Age: 57 Year
  Sex: Female

DRUGS (1)
  1. ASACOL [Suspect]
     Active Substance: MESALAMINE
     Indication: COLITIS ULCERATIVE
     Dosage: UNK
     Route: 065

REACTIONS (4)
  - Pancytopenia [Recovered/Resolved]
  - Petechiae [Recovered/Resolved]
  - Alopecia [Recovered/Resolved]
  - Leukopenia [Recovered/Resolved]
